FAERS Safety Report 7781230-8 (Version None)
Quarter: 2011Q3

REPORT INFORMATION
  Report Type: 
  Country: None (occurrence: None)
  Receive Date: 20110923
  Receipt Date: 20110909
  Transmission Date: 20111222
  Serious: Yes (Other)
  Sender: FDA-Public Use
  Company Number: 1000022935

PATIENT
  Age: 82 Year
  Sex: Male
  Weight: 70 kg

DRUGS (14)
  1. CONTROLOC (PANTOPRAZOLE) (PANTOPRAZOLE) [Concomitant]
  2. PREDUCTAL MR (TRIMETAZIDINE DIHYDROCHLORIDE) (TRIMETAZIDINE DIHYDROCHL [Concomitant]
  3. POLFILIN PROLONG (PENTOXIFYLLINE) (PENTOXIFYLLINE) [Concomitant]
  4. FOSAMIX (ALENDRONATE SODIUM) (ALENDRONATE SODIUM) [Concomitant]
  5. BETO (ZK (METOPROLOL) (METOPROLOL) [Concomitant]
  6. PROSCAR (FINASTERIDE) (FINASTERIDE) [Concomitant]
  7. EFFOX LONG (ISOSORBIDE MONONITRATE) (ISOSORBIDE MONONITRATE) [Concomitant]
  8. NEURONTIN [Concomitant]
  9. MEMANTINE HYDROCHLORIDE [Suspect]
     Dosage: 5 MG (5 MG, 1 IN 1 D), ORAL
     Route: 048
     Dates: start: 20110321, end: 20110323
  10. KREON 25000 (PANCREATIN) (PANCERATIN) [Concomitant]
  11. OMNIC (TAMSULOSIN HDYROCHLORIDE) (TAMSULOSIN HYDROCHLORIDE) [Concomitant]
  12. DONEPEX (DONEPEZIL HYDROCHLORIDE) (DONEPEZIL HYDROCHORIDE) [Concomitant]
  13. VENLECTINE (VENLAFAXINE) (VENLFAXINE) [Concomitant]
  14. OLFEN SR (DICLOFENAC SODIUM) (DICLOFENAC SODIUM) [Concomitant]

REACTIONS (5)
  - THROMBOCYTOPENIA [None]
  - RASH PRURITIC [None]
  - HAEMORRHAGIC DIATHESIS [None]
  - RASH MACULAR [None]
  - ERYTHEMA [None]
